FAERS Safety Report 7000505-3 (Version None)
Quarter: 2010Q3

REPORT INFORMATION
  Report Type: 
  Country: None (occurrence: None)
  Receive Date: 20100920
  Receipt Date: 20100301
  Transmission Date: 20110219
  Serious: Yes (Hospitalization, Other)
  Sender: FDA-Public Use
  Company Number: US-ASTRAZENECA-2009UW20964

PATIENT
  Age: 18385 Day
  Sex: Female

DRUGS (5)
  1. SEROQUEL [Suspect]
     Route: 048
  2. PRIVINIL [Concomitant]
     Route: 048
     Dates: start: 20080901
  3. TRICOR [Concomitant]
     Route: 048
     Dates: start: 20080915
  4. VALIUM [Concomitant]
     Route: 048
     Dates: start: 20080915
  5. NOVOLOG 70/30 MIXED [Concomitant]
     Dosage: 25 UNITS WITH BREAKFAST AND 20 UNITS EVERY PM WITH DINNER
     Route: 058
     Dates: start: 20080915

REACTIONS (5)
  - DIABETES MELLITUS [None]
  - DIABETIC KETOACIDOSIS [None]
  - KETOACIDOSIS [None]
  - PANCREATITIS [None]
  - TYPE 1 DIABETES MELLITUS [None]
